FAERS Safety Report 9130475 (Version 5)
Quarter: 2013Q3

REPORT INFORMATION
  Report Type: Spontaneous
  Country: IT (occurrence: IT)
  Receive Date: 20130301
  Receipt Date: 20130807
  Transmission Date: 20140515
  Serious: Yes (Hospitalization)
  Sender: FDA-Public Use
  Company Number: IT-BIOGENIDEC-2013BI019198

PATIENT
  Age: 47 Year
  Sex: Female

DRUGS (3)
  1. TYSABRI [Suspect]
     Indication: MULTIPLE SCLEROSIS
     Route: 042
     Dates: start: 20121108, end: 20130110
  2. TYSABRI [Suspect]
     Indication: MULTIPLE SCLEROSIS
     Dates: start: 20130311
  3. SOLUMEDROL [Concomitant]
     Indication: MULTIPLE SCLEROSIS RELAPSE
     Route: 042
     Dates: start: 20121220, end: 20121222

REACTIONS (2)
  - Ventricular extrasystoles [Not Recovered/Not Resolved]
  - Multiple sclerosis relapse [Unknown]
